FAERS Safety Report 5741258-6 (Version None)
Quarter: 2008Q2

REPORT INFORMATION
  Report Type: 
  Country: None (occurrence: None)
  Receive Date: 20080514
  Receipt Date: 20080429
  Transmission Date: 20081010
  Serious: Yes (Hospitalization)
  Sender: FDA-Public Use
  Company Number: SPI200800219

PATIENT
  Age: 72 Year
  Sex: Male
  Weight: 98.4 kg

DRUGS (3)
  1. AMITIZA [Suspect]
     Indication: CONSTIPATION
     Dosage: 24 MCG, QD, ORAL; 24 MCG, ORAL
     Route: 048
     Dates: start: 20070801, end: 20080201
  2. AMITIZA [Suspect]
     Indication: CONSTIPATION
     Dosage: 24 MCG, QD, ORAL; 24 MCG, ORAL
     Route: 048
     Dates: start: 20080401, end: 20080424
  3. BARACLUDE [Concomitant]

REACTIONS (7)
  - ASTHENIA [None]
  - CHILLS [None]
  - DIZZINESS [None]
  - MUSCLE SPASMS [None]
  - MYALGIA [None]
  - PYREXIA [None]
  - VOMITING [None]
